FAERS Safety Report 24384464 (Version 1)
Quarter: 2024Q3

REPORT INFORMATION
  Report Type: Spontaneous
  Country: US (occurrence: None)
  Receive Date: 20240930
  Receipt Date: 20240930
  Transmission Date: 20241017
  Serious: Yes (Life-Threatening, Hospitalization)
  Sender: Public
  Company Number: None

PATIENT
  Age: 48 Year
  Sex: Male
  Weight: 106 kg

DRUGS (6)
  1. LUMATEPERONE [Suspect]
     Active Substance: LUMATEPERONE
     Indication: Bipolar disorder
     Dosage: 42  MG DAILY ORAL
     Route: 048
     Dates: start: 20240923, end: 20240928
  2. LUMATEPERONE [Suspect]
     Active Substance: LUMATEPERONE
     Indication: Depression
  3. AMLODIPINE [Concomitant]
     Active Substance: AMLODIPINE BESYLATE
  4. JARDIANCE [Concomitant]
     Active Substance: EMPAGLIFLOZIN
  5. metformin 1000mg PO BID [Concomitant]
  6. MOUNJARO [Concomitant]
     Active Substance: TIRZEPATIDE

REACTIONS (1)
  - Suicidal ideation [None]

NARRATIVE: CASE EVENT DATE: 20240928
